FAERS Safety Report 5127800-7 (Version None)
Quarter: 2006Q4

REPORT INFORMATION
  Report Type: 
  Country: None (occurrence: None)
  Receive Date: 20061016
  Receipt Date: 20061003
  Transmission Date: 20070319
  Serious: Yes (Hospitalization)
  Sender: FDA-Public Use
  Company Number: JP-MERCK-0610USA09255

PATIENT
  Age: 61 Year
  Sex: Female

DRUGS (2)
  1. PRIMAXIN [Suspect]
     Indication: PANCREATITIS ACUTE
     Route: 065
  2. FUTHAN [Concomitant]
     Indication: PANCREATITIS ACUTE
     Route: 065

REACTIONS (2)
  - DIABETES INSIPIDUS [None]
  - INCORRECT ROUTE OF DRUG ADMINISTRATION [None]
